FAERS Safety Report 17598403 (Version 1)
Quarter: 2020Q1

REPORT INFORMATION
  Report Type: Spontaneous
  Country: US (occurrence: US)
  Receive Date: 20200330
  Receipt Date: 20200330
  Transmission Date: 20200409
  Serious: Yes (Hospitalization, Other)
  Sender: FDA-Public Use
  Company Number: US-MYLANLABS-2020M1032932

PATIENT
  Age: 54 Year
  Sex: Female

DRUGS (2)
  1. CARBOPLATIN. [Suspect]
     Active Substance: CARBOPLATIN
     Indication: OVARIAN ENDOMETRIOID CARCINOMA
     Dosage: 6 CYCLES
     Route: 065
  2. TAXOL [Suspect]
     Active Substance: PACLITAXEL
     Indication: OVARIAN ENDOMETRIOID CARCINOMA
     Dosage: 6 CYCLES
     Route: 065

REACTIONS (2)
  - Loss of consciousness [Recovering/Resolving]
  - Brain cancer metastatic [Recovering/Resolving]
